FAERS Safety Report 10096713 (Version 1)
Quarter: 2014Q2

REPORT INFORMATION
  Report Type: Spontaneous
  Country: AU (occurrence: AU)
  Receive Date: 20140422
  Receipt Date: 20140422
  Transmission Date: 20141212
  Serious: Yes (Other)
  Sender: FDA-Public Use
  Company Number: AU-MYLANLABS-2014S1008499

PATIENT
  Sex: Male

DRUGS (2)
  1. ENLAFAX-XR [Suspect]
     Indication: DEPRESSION
     Dates: start: 20140404
  2. ENDEP [Concomitant]
     Indication: SLEEP DISORDER

REACTIONS (2)
  - Poor quality sleep [Not Recovered/Not Resolved]
  - Depression [Not Recovered/Not Resolved]
